FAERS Safety Report 25343516 (Version 1)
Quarter: 2025Q2

REPORT INFORMATION
  Report Type: Spontaneous
  Country: GB (occurrence: GB)
  Receive Date: 20250521
  Receipt Date: 20250521
  Transmission Date: 20250717
  Serious: Yes (Death, Other)
  Sender: NOVARTIS
  Company Number: GB-SANDOZ-SDZ2024GB093715

PATIENT
  Sex: Female

DRUGS (2)
  1. EVEROLIMUS [Suspect]
     Active Substance: EVEROLIMUS
     Indication: Breast cancer
     Dosage: 7.5 MG, QD (7.5 MG, QD (STRENGTH: 2.5MG))
     Route: 048
     Dates: end: 20250506
  2. EVEROLIMUS [Suspect]
     Active Substance: EVEROLIMUS
     Dosage: 7.5 MG, QD (STRENGTH: 5 MG)
     Route: 048

REACTIONS (2)
  - Death [Fatal]
  - Gastrointestinal infection [Recovered/Resolved]

NARRATIVE: CASE EVENT DATE: 20250506
